FAERS Safety Report 7662029-X (Version None)
Quarter: 2011Q3

REPORT INFORMATION
  Report Type: 
  Country: None (occurrence: None)
  Receive Date: 20110805
  Receipt Date: 20101203
  Transmission Date: 20111222
  Serious: No
  Sender: FDA-Public Use
  Company Number: US-ABBOTT-10P-163-0690110-00

PATIENT
  Sex: Female
  Weight: 93.524 kg

DRUGS (2)
  1. NIASPAN [Suspect]
     Indication: BLOOD TRIGLYCERIDES INCREASED
     Dates: start: 20101026, end: 20101030
  2. LEVAQUIN [Concomitant]
     Indication: PRODUCT USED FOR UNKNOWN INDICATION

REACTIONS (6)
  - FOOT FRACTURE [None]
  - MALAISE [None]
  - FLUSHING [None]
  - VOMITING PROJECTILE [None]
  - HYPERHIDROSIS [None]
  - FALL [None]
